FAERS Safety Report 8780320 (Version 1)
Quarter: 2012Q4

REPORT INFORMATION
  Report Type: Spontaneous
  Country: US (occurrence: None)
  Receive Date: 20120904
  Receipt Date: 20120904
  Transmission Date: 20130627
  Serious: Yes (Other)
  Sender: FDA-Public Use
  Company Number: None

PATIENT
  Age: 40 Year
  Sex: Female
  Weight: 104.33 kg

DRUGS (1)
  1. TOPIRAMATE [Suspect]
     Indication: TREMOR
     Route: 048

REACTIONS (2)
  - Product substitution issue [None]
  - Drug ineffective [None]
